FAERS Safety Report 9015519 (Version 1)
Quarter: 2013Q1

REPORT INFORMATION
  Report Type: Spontaneous
  Country: US (occurrence: None)
  Receive Date: 20130102
  Receipt Date: 20130102
  Transmission Date: 20140127
  Serious: Yes (Death)
  Sender: FDA-Public Use
  Company Number: DSA_61584_2012

PATIENT
  Age: 84 Year
  Sex: Female

DRUGS (1)
  1. XENAZINE 12.5 MG (NOT SPECIFIED) [Suspect]
     Indication: DYSKINESIA
     Route: 048
     Dates: start: 20121030

REACTIONS (1)
  - Death [None]
